FAERS Safety Report 11036800 (Version 1)
Quarter: 2015Q2

REPORT INFORMATION
  Report Type: Spontaneous
  Country: US (occurrence: None)
  Receive Date: 20150415
  Receipt Date: 20150415
  Transmission Date: 20150821
  Serious: Yes (Hospitalization)
  Sender: FDA-Public Use
  Company Number: None

PATIENT
  Age: 49 Year
  Sex: Female
  Weight: 111.2 kg

DRUGS (1)
  1. ALLERGENIC EXTRACT- GRASS [Suspect]
     Active Substance: ALLERGENIC EXTRACT- GRASS
     Indication: HYPERSENSITIVITY
     Dosage: 0.45 ML  OTHER
     Route: 058
     Dates: start: 20141107, end: 20141107

REACTIONS (1)
  - Anaphylactic reaction [None]

NARRATIVE: CASE EVENT DATE: 20141107
